FAERS Safety Report 7728517-2 (Version None)
Quarter: 2011Q3

REPORT INFORMATION
  Report Type: 
  Country: None (occurrence: None)
  Receive Date: 20110906
  Receipt Date: 20110826
  Transmission Date: 20111222
  Serious: No
  Sender: FDA-Public Use
  Company Number: US-BIOGENIDEC-2010BI017927

PATIENT
  Sex: Female

DRUGS (3)
  1. TYSABRI [Suspect]
     Route: 042
     Dates: start: 20091110, end: 20100330
  2. TYSABRI [Suspect]
     Indication: MULTIPLE SCLEROSIS
     Route: 042
     Dates: start: 20041207, end: 20050208
  3. AVONEX [Concomitant]
     Indication: MULTIPLE SCLEROSIS
     Route: 030
     Dates: start: 20110206

REACTIONS (8)
  - EMOTIONAL DISORDER [None]
  - MOBILITY DECREASED [None]
  - PARAESTHESIA [None]
  - ASTHENIA [None]
  - HYPOAESTHESIA [None]
  - VISION BLURRED [None]
  - NUCLEAR MAGNETIC RESONANCE IMAGING ABNORMAL [None]
  - INFLUENZA LIKE ILLNESS [None]
